FAERS Safety Report 9027883 (Version 1)
Quarter: 2013Q1

REPORT INFORMATION
  Report Type: Spontaneous
  Country: US (occurrence: None)
  Receive Date: 20130115
  Receipt Date: 20130115
  Transmission Date: 20140127
  Serious: Yes (Other)
  Sender: FDA-Public Use
  Company Number: None

PATIENT
  Age: 50 Year
  Sex: Female
  Weight: 70.31 kg

DRUGS (1)
  1. TRANSDERMSCOPE UNKNOWN, TRANSDERMAL [Suspect]
     Indication: PROPHYLAXIS OF NAUSEA AND VOMITING
     Dates: start: 20130111, end: 20130111

REACTIONS (6)
  - Hallucination [None]
  - Abnormal dreams [None]
  - Somnolence [None]
  - Dyspnoea [None]
  - Anxiety [None]
  - Idiosyncratic drug reaction [None]
